FAERS Safety Report 4767691-7 (Version None)
Quarter: 2005Q3

REPORT INFORMATION
  Report Type: 
  Country: None (occurrence: None)
  Receive Date: 20050913
  Receipt Date: 20050901
  Transmission Date: 20060218
  Serious: Yes (Life-Threatening)
  Sender: FDA-Public Use
  Company Number: US-BRISTOL-MYERS SQUIBB COMPANY-13098215

PATIENT
  Age: 70 Year
  Sex: Female

DRUGS (9)
  1. ABILIFY [Suspect]
     Route: 048
     Dates: start: 20050301
  2. LEXAPRO [Concomitant]
     Route: 048
  3. LOTENSIN [Concomitant]
     Route: 048
  4. PREMARIN [Concomitant]
     Route: 048
  5. PREVACID [Concomitant]
     Route: 048
  6. CRESTOR [Concomitant]
     Route: 048
  7. ATIVAN [Concomitant]
     Route: 048
  8. NORVASC [Concomitant]
  9. WELLBUTRIN SR [Concomitant]

REACTIONS (1)
  - HYPERGLYCAEMIA [None]
